FAERS Safety Report 25866213 (Version 1)
Quarter: 2025Q3

REPORT INFORMATION
  Report Type: Spontaneous
  Country: US (occurrence: None)
  Receive Date: 20250930
  Receipt Date: 20250930
  Transmission Date: 20251021
  Serious: Yes (Hospitalization)
  Sender: ALKERMES
  Company Number: US-ALKERMES INC.-ALK-2025-002563

PATIENT
  Sex: Male

DRUGS (2)
  1. VIVITROL [Suspect]
     Active Substance: NALTREXONE
     Indication: Dependence
  2. VIVITROL [Suspect]
     Active Substance: NALTREXONE

REACTIONS (2)
  - Mental disorder [Unknown]
  - Alcohol use [Unknown]

NARRATIVE: CASE EVENT DATE: 20250801
